FAERS Safety Report 9821470 (Version 3)
Quarter: 2015Q3

REPORT INFORMATION
  Report Type: Spontaneous
  Country: US (occurrence: US)
  Receive Date: 20140116
  Receipt Date: 20150807
  Transmission Date: 20151125
  Serious: No
  Sender: FDA-Public Use
  Company Number: US-GILEAD-2011-0035879

PATIENT
  Age: 79 Year
  Sex: Female
  Weight: 66.68 kg

DRUGS (9)
  1. HYDRALAZINE [Concomitant]
     Active Substance: HYDRALAZINE HYDROCHLORIDE
  2. BUMEX [Concomitant]
     Active Substance: BUMETANIDE
  3. ADCIRCA [Concomitant]
     Active Substance: TADALAFIL
  4. LETAIRIS [Suspect]
     Active Substance: AMBRISENTAN
     Indication: PULMONARY HYPERTENSION
     Route: 048
     Dates: start: 201012
  5. LEVOTHYROXINE. [Concomitant]
     Active Substance: LEVOTHYROXINE
  6. LETAIRIS [Suspect]
     Active Substance: AMBRISENTAN
     Indication: MIXED CONNECTIVE TISSUE DISEASE
  7. METOPROLOL [Concomitant]
     Active Substance: METOPROLOL
  8. FISH OIL [Concomitant]
     Active Substance: FISH OIL
  9. ASA [Concomitant]
     Active Substance: ASPIRIN

REACTIONS (2)
  - Oedema [Recovered/Resolved]
  - Fatigue [Recovered/Resolved]

NARRATIVE: CASE EVENT DATE: 201101
